FAERS Safety Report 10073645 (Version 1)
Quarter: 2014Q2

REPORT INFORMATION
  Report Type: Spontaneous
  Country: US (occurrence: US)
  Receive Date: 20140411
  Receipt Date: 20140411
  Transmission Date: 20141212
  Serious: Yes (Other)
  Sender: FDA-Public Use
  Company Number: US-AMGEN-USASP2014024636

PATIENT
  Sex: Female

DRUGS (1)
  1. SENSIPAR [Suspect]
     Indication: HYPOPARATHYROIDISM SECONDARY
     Dosage: 30 MG IN THE MORNING AND 60 MG AT NIGHT
     Route: 065

REACTIONS (1)
  - Cardiac failure congestive [Unknown]
